FAERS Safety Report 7644516-3 (Version None)
Quarter: 2011Q3

REPORT INFORMATION
  Report Type: 
  Country: None (occurrence: None)
  Receive Date: 20110729
  Receipt Date: 20110719
  Transmission Date: 20111222
  Serious: Yes (Hospitalization)
  Sender: FDA-Public Use
  Company Number: DE-ROCHE-792874

PATIENT
  Sex: Female
  Weight: 65 kg

DRUGS (1)
  1. BONIVA [Suspect]
     Indication: OSTEOPOROSIS
     Route: 042
     Dates: start: 20110418

REACTIONS (7)
  - ASTHENIA [None]
  - DYSPNOEA [None]
  - ARTHRALGIA [None]
  - MYALGIA [None]
  - BONE PAIN [None]
  - INJECTION SITE IRRITATION [None]
  - PYREXIA [None]
